FAERS Safety Report 7535971-8 (Version None)
Quarter: 2011Q2

REPORT INFORMATION
  Report Type: 
  Country: None (occurrence: None)
  Receive Date: 20110609
  Receipt Date: 20110601
  Transmission Date: 20111010
  Serious: Yes (Disabling)
  Sender: FDA-Public Use
  Company Number: GB-TEVA-284636ISR

PATIENT
  Age: 2 Year
  Sex: Male

DRUGS (4)
  1. VALPROIC ACID [Suspect]
     Indication: CONVULSION
  2. AMOXICILLIN AND CLAVULANATE POTASSIUM [Suspect]
     Indication: MASTOIDITIS
  3. GENTAMICIN [Suspect]
     Indication: MASTOIDITIS
  4. STIRIPENTOL [Suspect]
     Indication: CONVULSION

REACTIONS (4)
  - ENCEPHALOPATHY [None]
  - MOTOR DEVELOPMENTAL DELAY [None]
  - CEREBELLAR ATROPHY [None]
  - FEEDING DISORDER [None]
